FAERS Safety Report 14971099 (Version 1)
Quarter: 2018Q2

REPORT INFORMATION
  Report Type: Spontaneous
  Country: US (occurrence: US)
  Receive Date: 20180514
  Receipt Date: 20180514
  Transmission Date: 20180711
  Serious: Yes (Disabling)
  Sender: FDA-Public Use
  Company Number: None

PATIENT
  Age: 56 Year
  Sex: Female
  Weight: 146.25 kg

DRUGS (4)
  1. VITAMIN D [Concomitant]
     Active Substance: CHOLECALCIFEROL
  2. BABY ASPIRIN [Concomitant]
     Active Substance: ASPIRIN
  3. LEVAQUIN [Suspect]
     Active Substance: LEVOFLOXACIN
     Indication: INFECTION
  4. VITAMIN B12 [Concomitant]
     Active Substance: CYANOCOBALAMIN

REACTIONS (9)
  - Food intolerance [None]
  - Gait disturbance [None]
  - Tendon disorder [None]
  - Muscle spasms [None]
  - Incontinence [None]
  - Neuropathy peripheral [None]
  - Pain [None]
  - Plantar fasciitis [None]
  - Skin wrinkling [None]

NARRATIVE: CASE EVENT DATE: 20070101
